FAERS Safety Report 9381786 (Version 2)
Quarter: 2013Q3

REPORT INFORMATION
  Report Type: Spontaneous
  Country: US (occurrence: US)
  Receive Date: 20130703
  Receipt Date: 20130711
  Transmission Date: 20140515
  Serious: No
  Sender: FDA-Public Use
  Company Number: US-TEVA-416403USA

PATIENT
  Sex: Male

DRUGS (2)
  1. NUVIGIL [Suspect]
     Indication: SLEEP APNOEA SYNDROME
     Route: 048
  2. PROVIGIL [Concomitant]
     Indication: SOMNOLENCE
     Route: 048

REACTIONS (1)
  - Drug effect decreased [Not Recovered/Not Resolved]
